FAERS Safety Report 5856132-4 (Version None)
Quarter: 2008Q3

REPORT INFORMATION
  Report Type: 
  Country: None (occurrence: None)
  Receive Date: 20080825
  Receipt Date: 20080819
  Transmission Date: 20090109
  Serious: Yes (Other)
  Sender: FDA-Public Use
  Company Number: FR-WYE-G01540308

PATIENT
  Sex: Male

DRUGS (1)
  1. EFFEXOR [Suspect]
     Indication: DEPRESSION
     Dosage: UNKNOWN
     Route: 048
     Dates: start: 20080101

REACTIONS (5)
  - CONDITION AGGRAVATED [None]
  - SPERM COUNT DECREASED [None]
  - SPERMATOGENESIS ABNORMAL [None]
  - SPERMATOZOA MORPHOLOGY ABNORMAL [None]
  - SPERMATOZOA PROGRESSIVE MOTILITY DECREASED [None]
